FAERS Safety Report 4545414-4 (Version None)
Quarter: 2005Q1

REPORT INFORMATION
  Report Type: 
  Country: None (occurrence: None)
  Receive Date: 20050103
  Receipt Date: 20041220
  Transmission Date: 20050727
  Serious: Yes (Life-Threatening)
  Sender: FDA-Public Use
  Company Number: FRWYE294120DEC04

PATIENT
  Age: 77 Year
  Sex: Female

DRUGS (8)
  1. EFFEXOR [Suspect]
     Indication: DEPRESSION
     Dosage: 100 MG 2X PER 1 DAY ORAL
     Route: 048
  2. COVERSYL (PERINDOPRIL, , 0) [Suspect]
     Dosage: ORAL
     Route: 048
  3. FUROSEMIDE (FUROSEMIDE, , 0) [Suspect]
     Dosage: ORAL
     Route: 048
  4. GLICLAZIDE (GLICLAZIDE, , 0) [Suspect]
     Dosage: ORAL
     Route: 048
  5. PREVISCAN (FLUINDIONE, , 0) [Concomitant]
     Dosage: ORAL
     Route: 048
  6. SOTALEX (SOTALOL HYDROCHLORIDE, , 0) [Suspect]
     Indication: ATRIAL FIBRILLATION
     Dosage: ORAL
     Route: 048
  7. TRACLEER [Suspect]
     Indication: PULMONARY HYPERTENSION
     Dosage: SEE IMAGE
     Dates: start: 20040101, end: 20040101
  8. TRACLEER [Suspect]
     Indication: PULMONARY HYPERTENSION
     Dosage: SEE IMAGE
     Dates: start: 20040101, end: 20040101

REACTIONS (4)
  - ACUTE MYELOID LEUKAEMIA [None]
  - LUNG DISORDER [None]
  - PANCYTOPENIA [None]
  - PULMONARY HYPERTENSION [None]
